FAERS Safety Report 5284059-8 (Version None)
Quarter: 2007Q2

REPORT INFORMATION
  Report Type: 
  Country: None (occurrence: None)
  Receive Date: 20070402
  Receipt Date: 20070321
  Transmission Date: 20071010
  Serious: Yes (Other)
  Sender: FDA-Public Use
  Company Number: FR-PFIZER INC-2007024926

PATIENT
  Sex: Female

DRUGS (2)
  1. AMLOR [Suspect]
     Indication: HYPERTENSION
     Dosage: DAILY DOSE:5MG
  2. AMLOR [Suspect]
     Dosage: DAILY DOSE:10MG

REACTIONS (3)
  - FACE OEDEMA [None]
  - FLUSHING [None]
  - PRURITUS [None]
